FAERS Safety Report 8616346-7 (Version None)
Quarter: 2012Q3

REPORT INFORMATION
  Report Type: 
  Country: None (occurrence: None)
  Receive Date: 20120823
  Receipt Date: 20120816
  Transmission Date: 20120928
  Serious: Yes (Other)
  Sender: FDA-Public Use
  Company Number: JP-009507513-1208JPN008270

PATIENT

DRUGS (1)
  1. FOSAMAX [Suspect]
     Dosage: 35 MG, QW
     Route: 048
     Dates: start: 20080101

REACTIONS (1)
  - FRACTURED SKULL DEPRESSED [None]
